FAERS Safety Report 8620865-7 (Version None)
Quarter: 2012Q3

REPORT INFORMATION
  Report Type: 
  Country: None (occurrence: None)
  Receive Date: 20120820
  Receipt Date: 20120820
  Transmission Date: 20120928
  Serious: Yes (Other)
  Sender: FDA-Public Use
  Company Number: None

PATIENT
  Sex: Male
  Weight: 22.6799 kg

DRUGS (1)
  1. ADVAIR HFA [Suspect]
     Indication: ASTHMA
     Dosage: 2 PUFFS, TWICE DAILY, INHAL
     Route: 055
     Dates: start: 20120615, end: 20120728

REACTIONS (8)
  - PALPITATIONS [None]
  - AGGRESSION [None]
  - TIC [None]
  - CARDIAC DISORDER [None]
  - CONDITION AGGRAVATED [None]
  - TOURETTE'S DISORDER [None]
  - DRUG DEPENDENCE [None]
  - DRUG WITHDRAWAL SYNDROME [None]
